FAERS Safety Report 7365958-X (Version None)
Quarter: 2011Q1

REPORT INFORMATION
  Report Type: 
  Country: None (occurrence: None)
  Receive Date: 20110322
  Receipt Date: 20110314
  Transmission Date: 20110831
  Serious: Yes (Other)
  Sender: FDA-Public Use
  Company Number: US-US-EMD SERONO, INC.-7005834

PATIENT
  Sex: Male

DRUGS (4)
  1. REBIF [Suspect]
     Indication: MULTIPLE SCLEROSIS
     Route: 058
     Dates: start: 20070629, end: 20100301
  2. REBIF [Suspect]
     Route: 058
     Dates: start: 20100401
  3. REBIF [Suspect]
     Route: 058
     Dates: start: 20100301, end: 20100401
  4. NEURONTIN [Concomitant]

REACTIONS (6)
  - FATIGUE [None]
  - BLOOD GLUCOSE INCREASED [None]
  - URINARY TRACT INFECTION [None]
  - PROSTATITIS [None]
  - POST PROCEDURAL HAEMORRHAGE [None]
  - LIVER FUNCTION TEST ABNORMAL [None]
